FAERS Safety Report 8416485-X (Version None)
Quarter: 2012Q2

REPORT INFORMATION
  Report Type: 
  Country: None (occurrence: None)
  Receive Date: 20120323
  Receipt Date: 20110805
  Transmission Date: 20120825
  Serious: Yes (Other)
  Sender: FDA-Public Use
  Company Number: 163-21880-11080947

PATIENT
  Age: 81 Year
  Sex: Male

DRUGS (1)
  1. REVLIMID [Suspect]
     Indication: MULTIPLE MYELOMA
     Dosage: ALTERNATE 10MG AND 5MG DAILY FOR 21 DAYS, PO
     Route: 048
     Dates: start: 20110501, end: 20110723

REACTIONS (2)
  - ABSCESS INTESTINAL [None]
  - LARGE INTESTINE PERFORATION [None]
